FAERS Safety Report 12832418 (Version 1)
Quarter: 2016Q4

REPORT INFORMATION
  Report Type: Spontaneous
  Country: US (occurrence: US)
  Receive Date: 20161010
  Receipt Date: 20161010
  Transmission Date: 20170207
  Serious: Yes (Death, Life-Threatening, Disabling, Other)
  Sender: FDA-Public Use
  Company Number: US-009507513-0708USA05268

PATIENT
  Age: 15 Year
  Sex: Male
  Weight: 62.8 kg

DRUGS (3)
  1. SINGULAIR [Suspect]
     Active Substance: MONTELUKAST SODIUM
     Indication: SEASONAL ALLERGY
  2. SINGULAIR [Suspect]
     Active Substance: MONTELUKAST SODIUM
     Indication: ASTHMA
     Dosage: 10 MG, QD
     Route: 048
     Dates: start: 20070719, end: 20070804
  3. SINGULAIR [Suspect]
     Active Substance: MONTELUKAST SODIUM
     Indication: RHINITIS ALLERGIC

REACTIONS (24)
  - Pain in extremity [Unknown]
  - Depression [Unknown]
  - Body temperature increased [Unknown]
  - Myalgia [Unknown]
  - Asthenia [Unknown]
  - Feeling abnormal [Unknown]
  - Feeling hot [Unknown]
  - Hyperhidrosis [Unknown]
  - Completed suicide [Fatal]
  - Agitation [Unknown]
  - Nervousness [Unknown]
  - Irritability [Unknown]
  - Product quality issue [Unknown]
  - Feeling of despair [Unknown]
  - Swelling face [Unknown]
  - Anger [Unknown]
  - Pruritus [Unknown]
  - Fatigue [Unknown]
  - Negativism [Unknown]
  - Insomnia [Unknown]
  - Anxiety [Unknown]
  - Mood swings [Unknown]
  - Limb discomfort [Unknown]
  - Restlessness [Unknown]

NARRATIVE: CASE EVENT DATE: 2007
